FAERS Safety Report 16882028 (Version 1)
Quarter: 2019Q4

REPORT INFORMATION
  Report Type: Spontaneous
  Country: US (occurrence: US)
  Receive Date: 20191003
  Receipt Date: 20191003
  Transmission Date: 20200122
  Serious: No
  Sender: FDA-Public Use
  Company Number: US-UNIQUE PHARMACEUTICAL LABORATORIES-2019RIS00387

PATIENT
  Age: 73 Year
  Sex: Female
  Weight: 126.98 kg

DRUGS (2)
  1. GLIPIZIDE. [Suspect]
     Active Substance: GLIPIZIDE
     Indication: TYPE 2 DIABETES MELLITUS
     Dosage: 2.5 MG, 1X/DAY
     Route: 048
     Dates: start: 20190702, end: 20190704
  2. UNSPECIFIED INSULIN [Concomitant]
     Active Substance: INSULIN NOS

REACTIONS (4)
  - Blood lactic acid increased [Unknown]
  - Burning sensation [Not Recovered/Not Resolved]
  - Peripheral swelling [Not Recovered/Not Resolved]
  - Pain [Not Recovered/Not Resolved]

NARRATIVE: CASE EVENT DATE: 201907
